FAERS Safety Report 9834680 (Version 1)
Quarter: 2014Q1

REPORT INFORMATION
  Report Type: Spontaneous
  Country: GB (occurrence: GB)
  Receive Date: 20140122
  Receipt Date: 20140122
  Transmission Date: 20141002
  Serious: Yes (Hospitalization, Other)
  Sender: FDA-Public Use
  Company Number: GB-TEVA-457087ISR

PATIENT
  Sex: Female

DRUGS (4)
  1. CITALOPRAM [Suspect]
     Dosage: 20 MILLIGRAM DAILY;
     Route: 048
     Dates: start: 201302
  2. CITALOPRAM [Suspect]
     Dosage: 30 MILLIGRAM DAILY;
     Route: 048
  3. CITALOPRAM [Suspect]
     Dosage: 40 MILLIGRAM DAILY;
     Route: 048
  4. CITALOPRAM [Suspect]
     Dosage: 20 MILLIGRAM DAILY;
     Route: 048
     Dates: start: 201302

REACTIONS (2)
  - Intracranial aneurysm [Unknown]
  - Hypoaesthesia [Recovered/Resolved]
